FAERS Safety Report 20472679 (Version 1)
Quarter: 2022Q1

REPORT INFORMATION
  Report Type: Spontaneous
  Country: US (occurrence: US)
  Receive Date: 20220215
  Receipt Date: 20220215
  Transmission Date: 20220424
  Serious: Yes (Death, Hospitalization)
  Sender: FDA-Public Use
  Company Number: US-CADILA HEALTHCARE LIMITED-US-ZYDUS-074802

PATIENT

DRUGS (1)
  1. AMLODIPINE [Suspect]
     Active Substance: AMLODIPINE BESYLATE
     Indication: Suicide attempt
     Dosage: 400 MILLIGRAM
     Route: 065

REACTIONS (4)
  - Distributive shock [Fatal]
  - Multiple organ dysfunction syndrome [Fatal]
  - Atrioventricular dissociation [Fatal]
  - Overdose [Fatal]
